FAERS Safety Report 22087045 (Version 2)
Quarter: 2023Q2

REPORT INFORMATION
  Report Type: Report from Study
  Country: US (occurrence: US)
  Receive Date: 20230313
  Receipt Date: 20230518
  Transmission Date: 20230721
  Serious: Yes (Other)
  Sender: FDA-Public Use
  Company Number: US-ABBVIE-4334591

PATIENT
  Age: 76 Year
  Sex: Male
  Weight: 119 kg

DRUGS (3)
  1. IMBRUVICA [Suspect]
     Active Substance: IBRUTINIB
     Indication: Non-Hodgkin^s lymphoma
     Dosage: FORM STRENGTH: 560 MG
     Route: 048
     Dates: start: 201905
  2. IMBRUVICA [Suspect]
     Active Substance: IBRUTINIB
     Indication: Non-Hodgkin^s lymphoma
     Dosage: FORM STRENGTH: 560 MG
     Route: 048
     Dates: end: 20230406
  3. IMBRUVICA [Suspect]
     Active Substance: IBRUTINIB
     Indication: Non-Hodgkin^s lymphoma
     Dosage: FORM STRENGTH: 560 MG
     Route: 048
     Dates: start: 20230409

REACTIONS (4)
  - Surgery [Unknown]
  - Hip surgery [Unknown]
  - Drug hypersensitivity [Unknown]
  - Fall [Unknown]

NARRATIVE: CASE EVENT DATE: 20230304
